FAERS Safety Report 12072921 (Version 1)
Quarter: 2016Q1

REPORT INFORMATION
  Report Type: Report from Study
  Country: JP (occurrence: JP)
  Receive Date: 20160212
  Receipt Date: 20160212
  Transmission Date: 20160526
  Serious: Yes (Other)
  Sender: FDA-Public Use
  Company Number: JP-009507513-1512JPN002858

PATIENT
  Age: 17 Year
  Sex: Female

DRUGS (110)
  1. DEXAMETHASONE SODIUM PHOSPHATE. [Concomitant]
     Active Substance: DEXAMETHASONE SODIUM PHOSPHATE
     Dosage: 6.6 MG, UNK
     Dates: start: 20150501, end: 20150501
  2. GRANISETRON [Concomitant]
     Active Substance: GRANISETRON
     Dosage: 2 MG, UNK
     Dates: start: 20150430, end: 20150430
  3. PRIMPERAN [Concomitant]
     Active Substance: METOCLOPRAMIDE HYDROCHLORIDE
     Dosage: 5 MG, UNK
     Dates: start: 20150514, end: 20150514
  4. ATARAX [Concomitant]
     Active Substance: HYDROXYZINE\HYDROXYZINE HYDROCHLORIDE
     Dosage: UNK
     Dates: start: 20150319, end: 20150319
  5. ATARAX [Concomitant]
     Active Substance: HYDROXYZINE\HYDROXYZINE HYDROCHLORIDE
     Dosage: UNK
     Dates: start: 20150501, end: 20150501
  6. UROMITEXAN [Concomitant]
     Active Substance: MESNA
     Dosage: 3000MG
     Dates: start: 20150402, end: 20150402
  7. UROMITEXAN [Concomitant]
     Active Substance: MESNA
     Dosage: 2000MG
     Dates: start: 2015, end: 2015
  8. FUROSEMIDE. [Concomitant]
     Active Substance: FUROSEMIDE
     Dosage: UNK
     Dates: start: 20150403, end: 20150403
  9. EMEND [Suspect]
     Active Substance: APREPITANT
     Dosage: 125 MG, QD
     Route: 048
     Dates: start: 20150402, end: 20150402
  10. EMEND [Suspect]
     Active Substance: APREPITANT
     Dosage: 80 MG, QD
     Route: 048
     Dates: start: 20150529, end: 20150530
  11. ONCOVIN [Suspect]
     Active Substance: VINCRISTINE SULFATE
     Dosage: 2 MG, QD
     Route: 042
     Dates: start: 20150710, end: 20150710
  12. COSMEGEN [Suspect]
     Active Substance: DACTINOMYCIN
     Dosage: 2.10 MG, QD
     Route: 042
     Dates: start: 20150402, end: 20150402
  13. ENDOXAN [Suspect]
     Active Substance: CYCLOPHOSPHAMIDE
     Indication: RHABDOMYOSARCOMA
     Dosage: 2600MG, QD
     Route: 042
     Dates: start: 20150318, end: 20150318
  14. GRANISETRON [Concomitant]
     Active Substance: GRANISETRON
     Dosage: 2 MG, UNK
     Dates: start: 20150318, end: 20150319
  15. ATARAX [Concomitant]
     Active Substance: HYDROXYZINE\HYDROXYZINE HYDROCHLORIDE
     Dosage: UNK
     Dates: start: 20150528, end: 20150528
  16. NOVAMIN (PROCHLORPERAZINE MALEATE) [Concomitant]
     Active Substance: PROCHLORPERAZINE MALEATE
     Dosage: 5 MG, UNK
     Dates: start: 20150402, end: 20150402
  17. DECADRON [Concomitant]
     Active Substance: DEXAMETHASONE
     Dosage: UNK
     Dates: start: 20150403, end: 20150405
  18. UROMITEXAN [Concomitant]
     Active Substance: MESNA
     Dosage: 1000MG
     Dates: start: 20150319, end: 20150319
  19. UROMITEXAN [Concomitant]
     Active Substance: MESNA
     Dosage: 1000MG
     Dates: start: 20150417, end: 20150417
  20. MEYLON [Concomitant]
     Active Substance: SODIUM BICARBONATE
     Dosage: UNK
     Dates: start: 20150318, end: 20150318
  21. FUROSEMIDE. [Concomitant]
     Active Substance: FUROSEMIDE
     Dosage: UNK
     Dates: start: 20150417, end: 20150417
  22. FUROSEMIDE. [Concomitant]
     Active Substance: FUROSEMIDE
     Dosage: UNK
     Dates: start: 20150430, end: 20150430
  23. MAGMITT [Concomitant]
     Active Substance: MAGNESIUM OXIDE
     Dosage: 990 MG, UNK
     Dates: start: 20150320, end: 20150320
  24. EMEND [Suspect]
     Active Substance: APREPITANT
     Dosage: 125 MG, QD
     Route: 048
     Dates: start: 20150416, end: 20150416
  25. EMEND [Suspect]
     Active Substance: APREPITANT
     Dosage: 80 MG, QD
     Route: 048
     Dates: start: 20150417, end: 20150418
  26. ONCOVIN [Suspect]
     Active Substance: VINCRISTINE SULFATE
     Dosage: 2 MG, QD
     Route: 042
     Dates: start: 20150416, end: 20150416
  27. COSMEGEN [Suspect]
     Active Substance: DACTINOMYCIN
     Indication: RHABDOMYOSARCOMA
     Dosage: 2.10 MG, QD
     Route: 042
     Dates: start: 20150318, end: 20150318
  28. COSMEGEN [Suspect]
     Active Substance: DACTINOMYCIN
     Dosage: 2.10 MG, QD
     Route: 042
     Dates: start: 20150514, end: 20150514
  29. DEXAMETHASONE SODIUM PHOSPHATE. [Concomitant]
     Active Substance: DEXAMETHASONE SODIUM PHOSPHATE
     Dosage: 6.6 MG, UNK
     Dates: start: 20150319, end: 20150319
  30. GRANISETRON [Concomitant]
     Active Substance: GRANISETRON
     Dosage: 1 MG, UNK
     Dates: start: 20150403, end: 20150403
  31. PRIMPERAN [Concomitant]
     Active Substance: METOCLOPRAMIDE HYDROCHLORIDE
     Dosage: 5 MG, UNK
     Dates: start: 20150416, end: 20150416
  32. ATARAX [Concomitant]
     Active Substance: HYDROXYZINE\HYDROXYZINE HYDROCHLORIDE
     Dosage: UNK
     Dates: start: 20150416, end: 20150416
  33. NOVAMIN (PROCHLORPERAZINE MALEATE) [Concomitant]
     Active Substance: PROCHLORPERAZINE MALEATE
     Dosage: 5 MG, UNK
     Dates: start: 20150320, end: 20150320
  34. LOXOPROFEN [Concomitant]
     Active Substance: LOXOPROFEN
     Dosage: UNK
     Dates: start: 20150402, end: 20150402
  35. G LASTA [Concomitant]
     Active Substance: PEGFILGRASTIM
     Dosage: UNK
     Dates: start: 20150515, end: 20150515
  36. EMEND [Suspect]
     Active Substance: APREPITANT
     Indication: PROPHYLAXIS OF NAUSEA AND VOMITING
     Dosage: 80 MG, QD
     Route: 048
     Dates: start: 20150318, end: 20150320
  37. ONCOVIN [Suspect]
     Active Substance: VINCRISTINE SULFATE
     Dosage: 2 MG, QD
     Route: 042
     Dates: start: 20150430, end: 20150430
  38. ONCOVIN [Suspect]
     Active Substance: VINCRISTINE SULFATE
     Dosage: 2 MG, QD
     Route: 042
     Dates: start: 20150514, end: 20150514
  39. COSMEGEN [Suspect]
     Active Substance: DACTINOMYCIN
     Dosage: 2.10 MG, QD
     Route: 042
     Dates: start: 20150430, end: 20150430
  40. COSMEGEN [Suspect]
     Active Substance: DACTINOMYCIN
     Dosage: 2.10 MG, QD
     Route: 042
     Dates: start: 20150528, end: 20150528
  41. COSMEGEN [Suspect]
     Active Substance: DACTINOMYCIN
     Dosage: 2.10 MG, QD
     Route: 042
     Dates: start: 20150710, end: 20150710
  42. DEXAMETHASONE SODIUM PHOSPHATE. [Concomitant]
     Active Substance: DEXAMETHASONE SODIUM PHOSPHATE
     Dosage: 6.6 MG, UNK
     Dates: start: 20150515, end: 20150515
  43. GRANISETRON [Concomitant]
     Active Substance: GRANISETRON
     Dosage: 1 MG, UNK
     Dates: start: 20150417, end: 20150417
  44. BAKTAR [Concomitant]
     Active Substance: SULFAMETHOXAZOLE\TRIMETHOPRIM
     Dosage: UNK
     Dates: start: 20150320
  45. FUROSEMIDE. [Concomitant]
     Active Substance: FUROSEMIDE
     Dosage: UNK
     Dates: start: 20150710, end: 20150710
  46. G LASTA [Concomitant]
     Active Substance: PEGFILGRASTIM
     Dosage: UNK
     Dates: start: 20150319, end: 20150319
  47. LAXOBERON [Concomitant]
     Active Substance: SODIUM PICOSULFATE
     Dosage: 10 DF, UNK
     Dates: start: 20150320, end: 20150320
  48. EMEND [Suspect]
     Active Substance: APREPITANT
     Dosage: 80 MG, QD
     Route: 048
     Dates: start: 20150403, end: 20150404
  49. EMEND [Suspect]
     Active Substance: APREPITANT
     Dosage: 125 MG, QD
     Route: 048
     Dates: start: 20150730, end: 20150730
  50. ENDOXAN [Suspect]
     Active Substance: CYCLOPHOSPHAMIDE
     Dosage: 2600MG, QD
     Route: 042
     Dates: start: 20150416, end: 20150416
  51. ENDOXAN [Suspect]
     Active Substance: CYCLOPHOSPHAMIDE
     Dosage: 2100MG, QD
     Route: 042
     Dates: start: 20150514, end: 20150514
  52. ENDOXAN [Suspect]
     Active Substance: CYCLOPHOSPHAMIDE
     Dosage: 1700MG, QD
     Route: 042
     Dates: start: 20150528, end: 20150528
  53. DEXAMETHASONE SODIUM PHOSPHATE. [Concomitant]
     Active Substance: DEXAMETHASONE SODIUM PHOSPHATE
     Dosage: 9.90 MG, UNK
     Dates: start: 20150318, end: 20150318
  54. DEXAMETHASONE SODIUM PHOSPHATE. [Concomitant]
     Active Substance: DEXAMETHASONE SODIUM PHOSPHATE
     Dosage: 9.9 MG, UNK
     Dates: start: 20150416, end: 20150416
  55. GRANISETRON [Concomitant]
     Active Substance: GRANISETRON
     Dosage: 1 MG, UNK
     Dates: start: 20150501, end: 20150501
  56. GRANISETRON [Concomitant]
     Active Substance: GRANISETRON
     Dosage: 2 MG, UNK
     Dates: start: 20150514, end: 20150514
  57. PRIMPERAN [Concomitant]
     Active Substance: METOCLOPRAMIDE HYDROCHLORIDE
     Dosage: 10 MG, UNK
     Dates: start: 20150319, end: 20150320
  58. NOVAMIN (PROCHLORPERAZINE MALEATE) [Concomitant]
     Active Substance: PROCHLORPERAZINE MALEATE
     Dosage: 5 MG, UNK
     Dates: start: 20150417, end: 20150417
  59. NOVAMIN (PROCHLORPERAZINE MALEATE) [Concomitant]
     Active Substance: PROCHLORPERAZINE MALEATE
     Dosage: 10 MG, UNK
     Dates: start: 20150528, end: 20150528
  60. FUROSEMIDE. [Concomitant]
     Active Substance: FUROSEMIDE
     Dosage: UNK
     Dates: start: 20150319, end: 20150319
  61. LECICARBON [Concomitant]
     Active Substance: SODIUM BICARBONATE\SODIUM PHOSPHATE, MONOBASIC
     Dosage: UNK
     Dates: start: 20150402, end: 20150402
  62. AUGMENTIN [Concomitant]
     Active Substance: AMOXICILLIN\CLAVULANATE POTASSIUM
     Dosage: UNK
  63. EMEND [Suspect]
     Active Substance: APREPITANT
     Dosage: 125 MG, QD
     Route: 048
     Dates: start: 20150430, end: 20150430
  64. EMEND [Suspect]
     Active Substance: APREPITANT
     Dosage: 125 MG, QD
     Route: 048
     Dates: start: 20150514, end: 20150514
  65. EMEND [Suspect]
     Active Substance: APREPITANT
     Dosage: 80 MG, QD
     Route: 048
     Dates: start: 20150515, end: 20150516
  66. EMEND [Suspect]
     Active Substance: APREPITANT
     Dosage: 80 MG, QD
     Route: 048
     Dates: start: 20150711, end: 20150712
  67. ONCOVIN [Suspect]
     Active Substance: VINCRISTINE SULFATE
     Indication: RHABDOMYOSARCOMA
     Dosage: 2 MG, QD
     Route: 042
     Dates: start: 20150318, end: 20150318
  68. ONCOVIN [Suspect]
     Active Substance: VINCRISTINE SULFATE
     Dosage: 2 MG, QD
     Route: 042
     Dates: start: 20150402, end: 20150402
  69. DEXAMETHASONE SODIUM PHOSPHATE. [Concomitant]
     Active Substance: DEXAMETHASONE SODIUM PHOSPHATE
     Dosage: 9.90 MG, UNK
     Dates: start: 20150402, end: 20150402
  70. DEXAMETHASONE SODIUM PHOSPHATE. [Concomitant]
     Active Substance: DEXAMETHASONE SODIUM PHOSPHATE
     Dosage: 6.6 MG, UNK
     Dates: start: 20150417, end: 20150417
  71. DEXAMETHASONE SODIUM PHOSPHATE. [Concomitant]
     Active Substance: DEXAMETHASONE SODIUM PHOSPHATE
     Dosage: 9.9 MG, UNK
     Dates: start: 20150514, end: 20150514
  72. GRANISETRON [Concomitant]
     Active Substance: GRANISETRON
     Dosage: 2 MG, UNK
     Dates: start: 20150402, end: 20150402
  73. NOVAMIN (PROCHLORPERAZINE MALEATE) [Concomitant]
     Active Substance: PROCHLORPERAZINE MALEATE
     Dosage: 10 MG, UNK
     Dates: start: 20150514, end: 20150514
  74. UROMITEXAN [Concomitant]
     Active Substance: MESNA
     Dosage: 2000MG
     Dates: start: 20150318, end: 20150318
  75. UROMITEXAN [Concomitant]
     Active Substance: MESNA
     Dosage: 3000MG
     Dates: start: 20150514, end: 20150514
  76. G LASTA [Concomitant]
     Active Substance: PEGFILGRASTIM
     Dosage: UNK
     Dates: start: 20150417, end: 20150417
  77. G LASTA [Concomitant]
     Active Substance: PEGFILGRASTIM
     Dosage: UNK
     Dates: start: 20150501, end: 20150501
  78. EMEND [Suspect]
     Active Substance: APREPITANT
     Dosage: 125 MG, QD
     Route: 048
     Dates: start: 20150710, end: 20150710
  79. COSMEGEN [Suspect]
     Active Substance: DACTINOMYCIN
     Dosage: 2.10 MG, QD
     Route: 042
     Dates: start: 20150416, end: 20150416
  80. DEXAMETHASONE SODIUM PHOSPHATE. [Concomitant]
     Active Substance: DEXAMETHASONE SODIUM PHOSPHATE
     Dosage: 6.6 MG, UNK
     Dates: start: 20150403, end: 20150403
  81. DEXAMETHASONE SODIUM PHOSPHATE. [Concomitant]
     Active Substance: DEXAMETHASONE SODIUM PHOSPHATE
     Dosage: 9.9 MG, UNK
     Dates: start: 20150710, end: 20150710
  82. GRANISETRON [Concomitant]
     Active Substance: GRANISETRON
     Dosage: 2 MG, UNK
     Dates: start: 20150710, end: 20150710
  83. PRIMPERAN [Concomitant]
     Active Substance: METOCLOPRAMIDE HYDROCHLORIDE
     Dosage: 10 MG, UNK
     Dates: start: 20150430, end: 20150430
  84. ATARAX [Concomitant]
     Active Substance: HYDROXYZINE\HYDROXYZINE HYDROCHLORIDE
     Dosage: UNK
     Dates: start: 20150515, end: 20150515
  85. NOVAMIN (PROCHLORPERAZINE MALEATE) [Concomitant]
     Active Substance: PROCHLORPERAZINE MALEATE
     Dosage: 5 MG, UNK
     Dates: start: 20150430, end: 20150430
  86. UROMITEXAN [Concomitant]
     Active Substance: MESNA
     Dosage: 3000MG
     Dates: start: 20150430, end: 20150430
  87. FUROSEMIDE. [Concomitant]
     Active Substance: FUROSEMIDE
     Dosage: UNK
     Dates: start: 20150514, end: 20150514
  88. G LASTA [Concomitant]
     Active Substance: PEGFILGRASTIM
     Dosage: UNK
     Dates: start: 20150711, end: 20150711
  89. LAXOBERON [Concomitant]
     Active Substance: SODIUM PICOSULFATE
     Dosage: 15 DF, UNK
     Dates: start: 20150402, end: 20150402
  90. GLYCERIN/GLYCERIN (+) MENTHOL (+) XYLITOL [Concomitant]
     Dosage: UNK
     Dates: start: 20150402, end: 20150402
  91. EMEND [Suspect]
     Active Substance: APREPITANT
     Dosage: 80 MG, QD
     Route: 048
     Dates: start: 20150501, end: 20150502
  92. EMEND [Suspect]
     Active Substance: APREPITANT
     Dosage: 125 MG, QD
     Route: 048
     Dates: start: 20150528, end: 20150528
  93. EMEND [Suspect]
     Active Substance: APREPITANT
     Dosage: 80 MG, QD
     Route: 048
     Dates: start: 20150731, end: 20150801
  94. ENDOXAN [Suspect]
     Active Substance: CYCLOPHOSPHAMIDE
     Dosage: 2600MG, QD
     Route: 042
     Dates: start: 20150402, end: 20150402
  95. ENDOXAN [Suspect]
     Active Substance: CYCLOPHOSPHAMIDE
     Dosage: 2100MG, QD
     Route: 042
     Dates: start: 20150430, end: 20150430
  96. ENDOXAN [Suspect]
     Active Substance: CYCLOPHOSPHAMIDE
     Dosage: 1600MG, QD
     Route: 042
     Dates: start: 20150710, end: 20150710
  97. DEXAMETHASONE SODIUM PHOSPHATE. [Concomitant]
     Active Substance: DEXAMETHASONE SODIUM PHOSPHATE
     Dosage: 9.9 MG, UNK
     Dates: start: 20150430, end: 20150430
  98. DEXAMETHASONE SODIUM PHOSPHATE. [Concomitant]
     Active Substance: DEXAMETHASONE SODIUM PHOSPHATE
     Dosage: 9.9 MG, UNK
     Dates: start: 20150528, end: 20150528
  99. GRANISETRON [Concomitant]
     Active Substance: GRANISETRON
     Dosage: 2 MG, UNK
     Dates: start: 20150416, end: 20150416
  100. GRANISETRON [Concomitant]
     Active Substance: GRANISETRON
     Dosage: 1 MG, UNK
     Dates: start: 20150515, end: 20150515
  101. GRANISETRON [Concomitant]
     Active Substance: GRANISETRON
     Dosage: 2 MG, UNK
     Dates: start: 20150528, end: 20150528
  102. ATARAX [Concomitant]
     Active Substance: HYDROXYZINE\HYDROXYZINE HYDROCHLORIDE
     Dosage: UNK
     Dates: start: 20150403, end: 20150403
  103. NOVAMIN (PROCHLORPERAZINE MALEATE) [Concomitant]
     Active Substance: PROCHLORPERAZINE MALEATE
     Dosage: 5 MG, UNK
     Dates: start: 20150710, end: 20150711
  104. UROMITEXAN [Concomitant]
     Active Substance: MESNA
     Dosage: 2400MG
     Dates: start: 20150710, end: 20150710
  105. LOXOPROFEN [Concomitant]
     Active Substance: LOXOPROFEN
     Dosage: UNK
     Dates: start: 20150318, end: 20150318
  106. FUROSEMIDE. [Concomitant]
     Active Substance: FUROSEMIDE
     Dosage: UNK
     Dates: start: 20150528, end: 20150528
  107. G LASTA [Concomitant]
     Active Substance: PEGFILGRASTIM
     Dosage: UNK
     Dates: start: 20150403, end: 20150403
  108. MAGMITT [Concomitant]
     Active Substance: MAGNESIUM OXIDE
     Dosage: 330 MG, UNK
     Dates: start: 20150430, end: 20150430
  109. CIPROFLOXACIN. [Concomitant]
     Active Substance: CIPROFLOXACIN
     Dosage: UNK
     Dates: start: 20150402
  110. HEPTAVAX [Concomitant]
     Dates: start: 20150515, end: 20150515

REACTIONS (9)
  - Pyrexia [Unknown]
  - Anaemia [Unknown]
  - Nausea [Unknown]
  - Drug prescribing error [Unknown]
  - Dermatitis [Unknown]
  - White blood cell count decreased [Unknown]
  - Agranulocytosis [Unknown]
  - Agranulocytosis [Unknown]
  - Platelet count decreased [Unknown]

NARRATIVE: CASE EVENT DATE: 20150318
